FAERS Safety Report 14004025 (Version 2)
Quarter: 2018Q1

REPORT INFORMATION
  Report Type: Spontaneous
  Country: US (occurrence: US)
  Receive Date: 20170922
  Receipt Date: 20180124
  Transmission Date: 20180508
  Serious: Yes (Other)
  Sender: FDA-Public Use
  Company Number: US-JNJFOC-20170713941

PATIENT
  Age: 62 Year
  Sex: Female

DRUGS (4)
  1. LEVAQUIN [Suspect]
     Active Substance: LEVOFLOXACIN
     Indication: CELLULITIS
     Route: 048
  2. LEVAQUIN [Suspect]
     Active Substance: LEVOFLOXACIN
     Indication: CELLULITIS
     Route: 048
  3. LEVAQUIN [Suspect]
     Active Substance: LEVOFLOXACIN
     Indication: ANTIBIOTIC PROPHYLAXIS
     Route: 042
  4. CIPRO [Suspect]
     Active Substance: CIPROFLOXACIN HYDROCHLORIDE
     Indication: PRODUCT USED FOR UNKNOWN INDICATION
     Route: 048

REACTIONS (2)
  - Neuropathy peripheral [Unknown]
  - Autonomic nervous system imbalance [Unknown]

NARRATIVE: CASE EVENT DATE: 20170306
